FAERS Safety Report 20230287 (Version 3)
Quarter: 2024Q1

REPORT INFORMATION
  Report Type: Report from Study
  Country: BR (occurrence: BR)
  Receive Date: 20211226
  Receipt Date: 20240312
  Transmission Date: 20240410
  Serious: Yes (Hospitalization, Other)
  Sender: FDA-Public Use
  Company Number: BR-ABBVIE-21K-020-4211157-00

PATIENT
  Sex: Female
  Weight: 68 kg

DRUGS (2)
  1. RINVOQ [Suspect]
     Active Substance: UPADACITINIB
     Indication: Rheumatoid arthritis
     Dosage: 1 TABLET
     Route: 048
     Dates: start: 20210805, end: 20211124
  2. RINVOQ [Suspect]
     Active Substance: UPADACITINIB
     Indication: Rheumatoid arthritis
     Dosage: 1 TABLET
     Route: 048
     Dates: start: 20211208

REACTIONS (19)
  - Ehlers-Danlos syndrome [Unknown]
  - Shoulder operation [Unknown]
  - Intestinal infarction [Unknown]
  - Gastric banding [Unknown]
  - Rotator cuff repair [Unknown]
  - Small intestinal resection [Unknown]
  - Vomiting [Recovered/Resolved]
  - Hypophagia [Recovering/Resolving]
  - Salmonellosis [Unknown]
  - Pain [Recovering/Resolving]
  - Abdominal pain [Recovering/Resolving]
  - Intracranial aneurysm [Unknown]
  - Intervertebral disc operation [Recovering/Resolving]
  - Intestinal operation [Recovered/Resolved]
  - Rotator cuff syndrome [Recovering/Resolving]
  - Rotator cuff syndrome [Recovering/Resolving]
  - Small intestinal resection [Recovered/Resolved]
  - Hip arthroplasty [Recovered/Resolved]
  - Intervertebral disc protrusion [Not Recovered/Not Resolved]

NARRATIVE: CASE EVENT DATE: 20210101
